FAERS Safety Report 17719542 (Version 3)
Quarter: 2020Q2

REPORT INFORMATION
  Report Type: Report from Study
  Country: US (occurrence: US)
  Receive Date: 20200428
  Receipt Date: 20200617
  Transmission Date: 20200714
  Serious: Yes (Hospitalization, Other)
  Sender: FDA-Public Use
  Company Number: US-ACTELION-A-US2016-133329

PATIENT
  Age: 69 Year
  Sex: Female
  Weight: 58.05 kg

DRUGS (12)
  1. VELETRI [Suspect]
     Active Substance: EPOPROSTENOL
     Dosage: 26.04 NG/KG, PER MIN
     Route: 042
  2. OXYGEN. [Concomitant]
     Active Substance: OXYGEN
     Dosage: 4 L/MIN UNK
  3. VELETRI [Suspect]
     Active Substance: EPOPROSTENOL
     Indication: PULMONARY ARTERIAL HYPERTENSION
     Dosage: 19.44 NG/KG, PER MIN
     Route: 042
  4. DILTIAZEM. [Concomitant]
     Active Substance: DILTIAZEM
  5. SILDENAFIL. [Concomitant]
     Active Substance: SILDENAFIL
  6. OXYGEN. [Concomitant]
     Active Substance: OXYGEN
     Dosage: 6-8 L/MIN WITH ACTIVITY
  7. VELETRI [Suspect]
     Active Substance: EPOPROSTENOL
     Dosage: 19.44 NG/KG, PER MIN
     Route: 042
  8. ADCIRCA [Concomitant]
     Active Substance: TADALAFIL
  9. VELETRI [Suspect]
     Active Substance: EPOPROSTENOL
     Dosage: 9.72 NG/KG, PER MIN
     Route: 042
     Dates: start: 20160314
  10. VELETRI [Suspect]
     Active Substance: EPOPROSTENOL
     Dosage: 22.2 NG/KG, PER MIN
     Route: 042
  11. VELETRI [Suspect]
     Active Substance: EPOPROSTENOL
     Dosage: 20.1 NG/KG, PER MIN
     Route: 042
  12. OXYGEN. [Concomitant]
     Active Substance: OXYGEN
     Dosage: 5 L/MIN  AT REST

REACTIONS (38)
  - Joint swelling [Unknown]
  - Malaise [Unknown]
  - Application site pruritus [Unknown]
  - Therapy non-responder [Unknown]
  - Catheter site pruritus [Unknown]
  - Humidity intolerance [Unknown]
  - Cardiac failure [Unknown]
  - Flatulence [Unknown]
  - Pain in jaw [Unknown]
  - Nausea [Unknown]
  - Oedema peripheral [Unknown]
  - Pain [Unknown]
  - Palpitations [Unknown]
  - Pulmonary hypertension [Unknown]
  - Rash erythematous [Unknown]
  - Transfusion [Unknown]
  - Haemoglobin decreased [Unknown]
  - Fluid retention [Recovering/Resolving]
  - General physical health deterioration [Unknown]
  - Weight increased [Unknown]
  - Cardiac failure congestive [Unknown]
  - Hypotension [Unknown]
  - Loss of personal independence in daily activities [Unknown]
  - Peripheral swelling [Not Recovered/Not Resolved]
  - Dyspnoea [Unknown]
  - Fatigue [Unknown]
  - Oxygen therapy [Unknown]
  - Dyspnoea exertional [Not Recovered/Not Resolved]
  - Catheter site exfoliation [Unknown]
  - Rhinorrhoea [Unknown]
  - Syncope [Unknown]
  - Anaemia [Unknown]
  - Atrial fibrillation [Unknown]
  - Headache [Recovered/Resolved]
  - Limb discomfort [Unknown]
  - Catheter site discharge [Unknown]
  - Catheter site infection [Recovered/Resolved]
  - Systemic lupus erythematosus [Unknown]

NARRATIVE: CASE EVENT DATE: 201604
